FAERS Safety Report 23392949 (Version 2)
Quarter: 2024Q1

REPORT INFORMATION
  Report Type: Spontaneous
  Country: US (occurrence: US)
  Receive Date: 20240111
  Receipt Date: 20240117
  Transmission Date: 20240409
  Serious: No
  Sender: FDA-Public Use
  Company Number: US-NOVOPROD-1094264

PATIENT

DRUGS (4)
  1. OZEMPIC [Suspect]
     Active Substance: SEMAGLUTIDE
     Indication: Proteinuria
  2. OZEMPIC [Suspect]
     Active Substance: SEMAGLUTIDE
     Indication: Chronic kidney disease
     Dosage: 0.25 MG
     Route: 058
     Dates: start: 202303, end: 202303
  3. RYBELSUS [Suspect]
     Active Substance: SEMAGLUTIDE
     Indication: Proteinuria
  4. RYBELSUS [Suspect]
     Active Substance: SEMAGLUTIDE
     Indication: Chronic kidney disease
     Dosage: 3 MG, QD
     Route: 048
     Dates: start: 202303, end: 202303

REACTIONS (2)
  - Pruritus [Recovered/Resolved]
  - Off label use [Unknown]
